FAERS Safety Report 12002594 (Version 1)
Quarter: 2016Q1

REPORT INFORMATION
  Report Type: Report from Study
  Country: US (occurrence: US)
  Receive Date: 20160204
  Receipt Date: 20160204
  Transmission Date: 20160526
  Serious: No
  Sender: FDA-Public Use
  Company Number: US-ABBVIE-15K-163-1425242-00

PATIENT
  Age: 75 Year
  Sex: Female

DRUGS (1)
  1. HUMIRA [Suspect]
     Active Substance: ADALIMUMAB
     Indication: RHEUMATOID ARTHRITIS
     Route: 058
     Dates: start: 20141224

REACTIONS (5)
  - Nausea [Unknown]
  - Dysphagia [Unknown]
  - Dysuria [Unknown]
  - Urine flow decreased [Unknown]
  - Micturition urgency [Unknown]

NARRATIVE: CASE EVENT DATE: 201412
